FAERS Safety Report 13442728 (Version 1)
Quarter: 2017Q2

REPORT INFORMATION
  Report Type: Spontaneous
  Country: US (occurrence: US)
  Receive Date: 20170413
  Receipt Date: 20170413
  Transmission Date: 20170830
  Serious: No
  Sender: FDA-Public Use
  Company Number: None

PATIENT
  Age: 70 Year
  Sex: Female
  Weight: 60.75 kg

DRUGS (32)
  1. FAMOTIDINE. [Concomitant]
     Active Substance: FAMOTIDINE
  2. SPIRONOLACTONE. [Concomitant]
     Active Substance: SPIRONOLACTONE
  3. CALCIUM CITRATE W/ VITAMIN D3 [Concomitant]
  4. MAGNESIUM CHELATED [Concomitant]
  5. COQ10 [Concomitant]
     Active Substance: UBIDECARENONE
  6. RESTASIS EMU [Concomitant]
  7. ECHINACEA [Concomitant]
     Active Substance: ECHINACEA, UNSPECIFIED
  8. GELATIN [Concomitant]
     Active Substance: GELATIN
  9. GINKO BILOBA [Concomitant]
     Active Substance: GINKGO
  10. VITAMIN D3 [Concomitant]
     Active Substance: CHOLECALCIFEROL
  11. COCONUT OIL [Concomitant]
     Active Substance: COCONUT OIL
  12. BUMETANIDE. [Concomitant]
     Active Substance: BUMETANIDE
  13. CITALOPRAM [Concomitant]
     Active Substance: CITALOPRAM HYDROBROMIDE
  14. HYDROCO/APAP [Concomitant]
     Active Substance: ACETAMINOPHEN\HYDROCODONE
  15. WARFARIN [Concomitant]
     Active Substance: WARFARIN
  16. FIBER PILLS (USUALLY PSYLLIUM) [Concomitant]
  17. VITAMIN C [Concomitant]
     Active Substance: ASCORBIC ACID
  18. AMIODARONE 200 MG. [Suspect]
     Active Substance: AMIODARONE
     Indication: ATRIAL FIBRILLATION
     Dosage: ?          QUANTITY:60 TABLET(S);?
     Route: 048
     Dates: start: 20170317, end: 20170323
  19. DILITIAZEM SR [Concomitant]
  20. B-100 COMPLEX W/CHOLINE [Concomitant]
  21. GNC MULTIVITAMIN ULTRA MEGA GOLD (NO VIT K) [Concomitant]
  22. ST JUDE AORTIC VALVE [Concomitant]
  23. TRAZODONE [Concomitant]
     Active Substance: TRAZODONE HYDROCHLORIDE
  24. VALSARTAN. [Concomitant]
     Active Substance: VALSARTAN
  25. ZOLPIDEM [Concomitant]
     Active Substance: ZOLPIDEM\ZOLPIDEM TARTRATE
  26. FISH OIL [Concomitant]
     Active Substance: FISH OIL
  27. GLUCOSAMINE+MSM [Concomitant]
  28. SILICA [Concomitant]
     Active Substance: SILICON DIOXIDE
  29. DIGOXIN. [Concomitant]
     Active Substance: DIGOXIN
  30. POTASSIUM CL [Concomitant]
     Active Substance: POTASSIUM CHLORIDE
  31. ACIDOLPHILIS [Concomitant]
  32. L-LYSINE [Concomitant]
     Active Substance: LYSINE

REACTIONS (4)
  - International normalised ratio increased [None]
  - Anxiety [None]
  - Cough [None]
  - Visual impairment [None]

NARRATIVE: CASE EVENT DATE: 20170323
